FAERS Safety Report 16504337 (Version 3)
Quarter: 2019Q3

REPORT INFORMATION
  Report Type: Spontaneous
  Country: US (occurrence: US)
  Receive Date: 20190701
  Receipt Date: 20190716
  Transmission Date: 20191004
  Serious: No
  Sender: FDA-Public Use
  Company Number: US-PFIZER INC-2019278279

PATIENT
  Age: 69 Year
  Sex: Female
  Weight: 90.7 kg

DRUGS (6)
  1. CELEBREX [Concomitant]
     Active Substance: CELECOXIB
     Indication: PAIN MANAGEMENT
     Dosage: 200 MG, 1X/DAY
     Route: 048
  2. NEURONTIN [Suspect]
     Active Substance: GABAPENTIN
     Indication: PAIN
  3. NEURONTIN [Suspect]
     Active Substance: GABAPENTIN
     Indication: PAIN MANAGEMENT
     Dosage: 600 MG, 3X/DAY
     Route: 048
     Dates: end: 201905
  4. TRAMADOL. [Concomitant]
     Active Substance: TRAMADOL
     Indication: PAIN MANAGEMENT
     Dosage: UNK (NOT EVERY DAY)
  5. BACLOFEN. [Concomitant]
     Active Substance: BACLOFEN
     Indication: PAIN MANAGEMENT
     Dosage: UNK
  6. NEURONTIN [Suspect]
     Active Substance: GABAPENTIN
     Indication: INTERVERTEBRAL DISC DEGENERATION
     Dosage: 600 MG, 3X/DAY
     Route: 048
     Dates: start: 201906

REACTIONS (3)
  - Back pain [Unknown]
  - Sciatica [Unknown]
  - Drug ineffective for unapproved indication [Unknown]
